FAERS Safety Report 5317409-4 (Version None)
Quarter: 2007Q2

REPORT INFORMATION
  Report Type: 
  Country: None (occurrence: None)
  Receive Date: 20070502
  Receipt Date: 20070502
  Transmission Date: 20071010
  Serious: Yes (Hospitalization)
  Sender: FDA-Public Use
  Company Number: None

PATIENT
  Age: 32 Year
  Sex: Female
  Weight: 68.0396 kg

DRUGS (2)
  1. CYMBALTA [Suspect]
     Indication: FIBROMYALGIA
     Dosage: SEE IMAGE
     Route: 048
     Dates: start: 20060101, end: 20060314
  2. CYMBALTA [Suspect]
     Indication: NEUROPATHY
     Dosage: SEE IMAGE
     Route: 048
     Dates: start: 20060101, end: 20060314

REACTIONS (10)
  - ABDOMINAL PAIN UPPER [None]
  - ANGER [None]
  - CRYING [None]
  - DRUG WITHDRAWAL SYNDROME [None]
  - EMOTIONAL DISORDER [None]
  - FEELING HOT AND COLD [None]
  - FORMICATION [None]
  - MEDICATION ERROR [None]
  - MOOD SWINGS [None]
  - SUICIDAL IDEATION [None]
